FAERS Safety Report 9571235 (Version 1)
Quarter: 2013Q4

REPORT INFORMATION
  Report Type: Spontaneous
  Country: TW (occurrence: TW)
  Receive Date: 20131001
  Receipt Date: 20131001
  Transmission Date: 20140711
  Serious: Yes (Disabling, Other)
  Sender: FDA-Public Use
  Company Number: PHHY2013TW106562

PATIENT
  Age: 68 Year
  Sex: Female

DRUGS (16)
  1. FENTANYL [Suspect]
     Indication: PAIN
     Dosage: 24 UG/HR
     Route: 062
  2. TRAMADOL/PARACETAMOL [Suspect]
     Indication: PAIN
     Dosage: 1 DF, QID
  3. TRAMADOL [Suspect]
     Indication: PAIN
     Dosage: 100 MG, TID
  4. MORPHINE [Suspect]
     Indication: PAIN
     Dosage: 160 MG,
  5. MORPHINE [Suspect]
     Dosage: 10 MG, PRN
  6. MORPHINE [Suspect]
     Dosage: 0.5 MG/H
     Route: 037
  7. SERTRALINE [Suspect]
     Indication: DEPRESSION
  8. BACLOFEN [Suspect]
  9. TIZANIDINE [Suspect]
     Indication: CONVULSION
  10. CLONAZEPAM [Suspect]
     Indication: MYELITIS TRANSVERSE
     Dosage: 0.5 MG, BID
  11. IMIPRAMINE [Suspect]
     Indication: MYELITIS TRANSVERSE
     Dosage: 10 MG, QD
  12. GABAPENTIN [Suspect]
     Indication: MYELITIS TRANSVERSE
     Dosage: 300 MG, QD
  13. GABAPENTIN [Suspect]
     Dosage: 300 MG, TID
  14. GABAPENTIN [Suspect]
     Dosage: 300 MG, TID
  15. PETHIDINE [Suspect]
     Indication: PAIN
     Dosage: 0.5 DF, UNK
  16. DIHYDROXYACETONE [Suspect]

REACTIONS (15)
  - Hallucination [Unknown]
  - Hypoaesthesia [Unknown]
  - Muscle spasms [Unknown]
  - Paraesthesia [Unknown]
  - Pain [Unknown]
  - Muscle tightness [Unknown]
  - Confusional state [Unknown]
  - Constipation [Unknown]
  - Nausea [Unknown]
  - Feeling cold [Unknown]
  - Dizziness [Unknown]
  - Asthenia [Unknown]
  - Dry mouth [Unknown]
  - Lethargy [Unknown]
  - Drug ineffective [Unknown]
